FAERS Safety Report 19901140 (Version 1)
Quarter: 2021Q3

REPORT INFORMATION
  Report Type: Spontaneous
  Country: CZ (occurrence: CZ)
  Receive Date: 20210930
  Receipt Date: 20210930
  Transmission Date: 20211014
  Serious: Yes (Death, Life-Threatening, Hospitalization, Disabling, Other)
  Sender: FDA-Public Use
  Company Number: CZ-SHILPA MEDICARE LIMITED-SML-CZ-2021-01163

PATIENT
  Age: 78 Year
  Sex: Male
  Weight: 87 kg

DRUGS (3)
  1. CERUCAL [Concomitant]
     Active Substance: METOCLOPRAMIDE HYDROCHLORIDE
     Indication: PRODUCT USED FOR UNKNOWN INDICATION
  2. LOPERON [Concomitant]
     Indication: PRODUCT USED FOR UNKNOWN INDICATION
  3. CAPECITABINE, UNKNOWN [Suspect]
     Active Substance: CAPECITABINE
     Indication: COLON CANCER
     Dates: start: 20210811, end: 20210824

REACTIONS (3)
  - Colitis [Fatal]
  - Sepsis [Fatal]
  - Gastroenteritis [Fatal]

NARRATIVE: CASE EVENT DATE: 20210824
